FAERS Safety Report 17262061 (Version 2)
Quarter: 2020Q1

REPORT INFORMATION
  Report Type: Spontaneous
  Country: US (occurrence: US)
  Receive Date: 20200113
  Receipt Date: 20200324
  Transmission Date: 20200409
  Serious: Yes (Other)
  Sender: FDA-Public Use
  Company Number: US-GILEAD-2020-0446121

PATIENT
  Age: 51 Year
  Sex: Male

DRUGS (82)
  1. TRUVADA [Suspect]
     Active Substance: EMTRICITABINE\TENOFOVIR DISOPROXIL FUMARATE
     Indication: HIV INFECTION
     Dosage: 1 DOSAGE FORM, QD
     Route: 048
     Dates: start: 20080425, end: 200804
  2. FLUTICASONE. [Concomitant]
     Active Substance: FLUTICASONE
  3. AMOXI CLAV [Concomitant]
     Active Substance: AMOXICILLIN\CLAVULANATE POTASSIUM
  4. CRESTOR [Concomitant]
     Active Substance: ROSUVASTATIN CALCIUM
  5. EMTRICITABINE [Concomitant]
     Active Substance: EMTRICITABINE
  6. AZITHROMYCIN ANHYDROUS. [Concomitant]
     Active Substance: AZITHROMYCIN ANHYDROUS
  7. BACTRIM DS [Concomitant]
     Active Substance: SULFAMETHOXAZOLE\TRIMETHOPRIM
  8. TRICOR [ADENOSINE] [Concomitant]
     Active Substance: ADENOSINE
  9. CIPROFLOXACIN. [Concomitant]
     Active Substance: CIPROFLOXACIN
  10. FLUOCINOLONE ACETONIDE. [Concomitant]
     Active Substance: FLUOCINOLONE ACETONIDE
  11. HYDROCODONE/ACETAMINOPHEN [Concomitant]
     Active Substance: ACETAMINOPHEN\HYDROCODONE
  12. NYSTATIN. [Concomitant]
     Active Substance: NYSTATIN
  13. PREDNISONE. [Concomitant]
     Active Substance: PREDNISONE
  14. GLIPIZIDE. [Concomitant]
     Active Substance: GLIPIZIDE
  15. ZOSYN [Concomitant]
     Active Substance: PIPERACILLIN SODIUM\TAZOBACTAM SODIUM
  16. CEFDINIR. [Concomitant]
     Active Substance: CEFDINIR
  17. SIMETHICONE (DIMETHICONE) [Concomitant]
     Active Substance: DIMETHICONE
  18. SODIUM CHLORIDE. [Concomitant]
     Active Substance: SODIUM CHLORIDE
  19. ATRIPLA [Suspect]
     Active Substance: EFAVIRENZ\EMTRICITABINE\TENOFOVIR DISOPROXIL FUMARATE
     Indication: HIV INFECTION
     Dosage: 1 DOSAGE FORM, QD
     Route: 048
     Dates: start: 20070427, end: 20170424
  20. MUPIROCIN. [Concomitant]
     Active Substance: MUPIROCIN
  21. PSEUDOEPHEDRINE. [Concomitant]
     Active Substance: PSEUDOEPHEDRINE HYDROCHLORIDE
  22. VANCOMYCIN [Concomitant]
     Active Substance: VANCOMYCIN
  23. CHOLECALCIFEROL [Concomitant]
     Active Substance: CHOLECALCIFEROL
  24. PRAMOXINE [Concomitant]
     Active Substance: PRAMOXINE
  25. CREATINE [Concomitant]
     Active Substance: CREATINE
  26. LORAZEPAM. [Concomitant]
     Active Substance: LORAZEPAM
  27. CYANOCOBALAMIN. [Concomitant]
     Active Substance: CYANOCOBALAMIN
  28. FENOFIBRATE. [Concomitant]
     Active Substance: FENOFIBRATE
  29. PAROXETINE. [Concomitant]
     Active Substance: PAROXETINE
  30. DIPHENOXYLATE/ATROPINE [Concomitant]
     Active Substance: ATROPINE\DIPHENOXYLATE
  31. ALENDRONATE [Concomitant]
     Active Substance: ALENDRONATE SODIUM
  32. FUROSEMIDE. [Concomitant]
     Active Substance: FUROSEMIDE
  33. EPIPEN [Concomitant]
     Active Substance: EPINEPHRINE
  34. RANITIDINE. [Concomitant]
     Active Substance: RANITIDINE
  35. CALCIUM + VITAMIN D [CALCIUM LACTATE;CALCIUM PHOSPHATE;COLECALCIFEROL] [Concomitant]
  36. OXYGEN. [Concomitant]
     Active Substance: OXYGEN
  37. CHLORHEXIDINE [Concomitant]
     Active Substance: CHLORHEXIDINE
  38. GABAPENTIN. [Concomitant]
     Active Substance: GABAPENTIN
  39. AMOXICILLIN. [Concomitant]
     Active Substance: AMOXICILLIN
  40. EPINEPHRINE. [Concomitant]
     Active Substance: EPINEPHRINE
  41. METRONIDAZOLE. [Concomitant]
     Active Substance: METRONIDAZOLE
  42. ONDANSETRON [Concomitant]
     Active Substance: ONDANSETRON
  43. ATORVASTATIN [Concomitant]
     Active Substance: ATORVASTATIN
  44. DEXTROSE 10% [Concomitant]
     Active Substance: DEXTROSE
  45. ENOXAPARIN [Concomitant]
     Active Substance: ENOXAPARIN
  46. ZOLPIDEM [Concomitant]
     Active Substance: ZOLPIDEM TARTRATE
  47. AMLODIPINE [Concomitant]
     Active Substance: AMLODIPINE BESYLATE
  48. OMEPRAZOLE. [Concomitant]
     Active Substance: OMEPRAZOLE
  49. PROAIR HFA [Concomitant]
     Active Substance: ALBUTEROL SULFATE
  50. OMEGA 3 [FISH OIL;VITAMIN E NOS] [Concomitant]
  51. SUSTIVA [Concomitant]
     Active Substance: EFAVIRENZ
  52. CEFPODOXIME [Concomitant]
     Active Substance: CEFPODOXIME
  53. SULFAMETHIN [Concomitant]
     Active Substance: SULFISOMIDINE
  54. AUGMENTIN BAMBINI [Concomitant]
     Active Substance: AMOXICILLIN\CLAVULANIC ACID
  55. BACTROBAN [Concomitant]
     Active Substance: MUPIROCIN\MUPIROCIN CALCIUM
  56. DIPHENHYDRAMINE. [Concomitant]
     Active Substance: DIPHENHYDRAMINE
  57. LOMOTIL [LOPERAMIDE HYDROCHLORIDE] [Concomitant]
  58. LINAGLIPTIN [Concomitant]
     Active Substance: LINAGLIPTIN
  59. ACYCLOVIR ABBOTT VIAL [Concomitant]
  60. FLEET PHOSPHATE ENEMA [Concomitant]
  61. GENVOYA [Concomitant]
     Active Substance: COBICISTAT\ELVITEGRAVIR\EMTRICITABINE\TENOFOVIR ALAFENAMIDE FUMARATE
  62. METHADONE [Concomitant]
     Active Substance: METHADONE HYDROCHLORIDE
  63. NIACIN. [Concomitant]
     Active Substance: NIACIN
  64. PROVENTIL HFA [Concomitant]
     Active Substance: ALBUTEROL SULFATE
  65. LACTATED RINGERS SOLUTION [Concomitant]
     Active Substance: CALCIUM CHLORIDE\POTASSIUM CHLORIDE\SODIUM CHLORIDE\SODIUM LACTATE
  66. CEPHALEXIN AMEL [Concomitant]
     Active Substance: CEPHALEXIN
  67. HYDROQUINONE. [Concomitant]
     Active Substance: HYDROQUINONE
  68. PHENAZOPYRIDINE. [Concomitant]
     Active Substance: PHENAZOPYRIDINE
  69. PEN G POTASSIUM [Concomitant]
  70. DOCUSATE SODIUM. [Concomitant]
     Active Substance: DOCUSATE SODIUM
  71. LISINOPRIL. [Concomitant]
     Active Substance: LISINOPRIL
  72. METFORMIN [Concomitant]
     Active Substance: METFORMIN HYDROCHLORIDE
  73. DOXYCYCLINE MONOHYDRATE [Concomitant]
     Active Substance: DOXYCYCLINE
  74. ODEFSEY [Concomitant]
     Active Substance: EMTRICITABINE\RILPIVIRINE HYDROCHLORIDE\TENOFOVIR ALAFENAMIDE FUMARATE
  75. ALBUTEROL HFA [Concomitant]
     Active Substance: ALBUTEROL SULFATE
  76. NORCO [Concomitant]
     Active Substance: ACETAMINOPHEN\HYDROCODONE BITARTRATE
  77. AMBIEN [Concomitant]
     Active Substance: ZOLPIDEM TARTRATE
  78. ACETAMINOPHEN;PHENYLEPHRINE HYDROCHLORIDE [Concomitant]
  79. PIPERACILLIN/TAZO. [Concomitant]
     Active Substance: PIPERACILLIN SODIUM\TAZOBACTAM SODIUM
  80. ADCO-DEXTROSE [Concomitant]
  81. CLOBETASOL [Concomitant]
     Active Substance: CLOBETASOL
  82. OFLOXACINE [Concomitant]
     Active Substance: OFLOXACIN

REACTIONS (6)
  - Anhedonia [Unknown]
  - Economic problem [Unknown]
  - Anxiety [Unknown]
  - Chronic kidney disease [Not Recovered/Not Resolved]
  - Emotional distress [Unknown]
  - Pain [Unknown]

NARRATIVE: CASE EVENT DATE: 20150115
